FAERS Safety Report 18241598 (Version 1)
Quarter: 2020Q3

REPORT INFORMATION
  Report Type: Spontaneous
  Country: US (occurrence: US)
  Receive Date: 20200908
  Receipt Date: 20200908
  Transmission Date: 20201103
  Serious: Yes (Other)
  Sender: FDA-Public Use
  Company Number: NVSC2020US244091

PATIENT
  Age: 10 Year
  Sex: Male

DRUGS (2)
  1. VEMURAFENIB. [Suspect]
     Active Substance: VEMURAFENIB
     Indication: ASTROCYTOMA MALIGNANT
     Dosage: 480 MG, BID
     Route: 065
  2. EVEROLIMUS. [Suspect]
     Active Substance: EVEROLIMUS
     Indication: ASTROCYTOMA MALIGNANT
     Dosage: 2.5 MG, QD
     Route: 048

REACTIONS (2)
  - Rash [Recovering/Resolving]
  - Product use in unapproved indication [Unknown]
